FAERS Safety Report 9346444 (Version 1)
Quarter: 2013Q2

REPORT INFORMATION
  Report Type: Spontaneous
  Country: US (occurrence: US)
  Receive Date: 20130613
  Receipt Date: 20130613
  Transmission Date: 20140414
  Serious: Yes (Other)
  Sender: FDA-Public Use
  Company Number: US-BAUSCH-BL-2013-003587

PATIENT
  Age: 43 Year
  Sex: Male

DRUGS (5)
  1. FLUOCINOLONE ACETONIDE INTRAVITREAL IMPLANT (0.5 MG) [Suspect]
     Indication: VASCULITIS
     Route: 047
     Dates: start: 20090918
  2. BESIVANCE (BESIFLOXACIN OPHTHALMIC SUSPENSION) 0.6% [Concomitant]
     Dosage: 1 GTT TID OD
     Route: 047
     Dates: end: 20130404
  3. TIMOLOL MALEATE/BRIMONIDINE TARTRATE [Concomitant]
     Dosage: 1 GTT BID OD
     Route: 047
  4. TROPICAMIDE [Concomitant]
     Indication: POSTOPERATIVE CARE
     Route: 047
  5. PHENYLEPHRINE [Concomitant]
     Indication: POSTOPERATIVE CARE
     Route: 047
     Dates: start: 20130408, end: 20130408

REACTIONS (2)
  - Scleral thinning [Recovered/Resolved]
  - Suture related complication [Recovered/Resolved]
